FAERS Safety Report 7470917-2 (Version None)
Quarter: 2011Q2

REPORT INFORMATION
  Report Type: 
  Country: None (occurrence: None)
  Receive Date: 20110510
  Receipt Date: 20110504
  Transmission Date: 20111010
  Serious: Yes (Hospitalization)
  Sender: FDA-Public Use
  Company Number: CH-ASTRAZENECA-2011SE25879

PATIENT
  Age: 94 Year
  Sex: Female

DRUGS (4)
  1. ACTONEL [Concomitant]
  2. TENORMIN [Suspect]
     Route: 048
     Dates: start: 20110327
  3. ALDOZONE [Concomitant]
     Route: 048
  4. SERESTA [Concomitant]
     Route: 048

REACTIONS (1)
  - ATRIOVENTRICULAR BLOCK COMPLETE [None]
